FAERS Safety Report 23947559 (Version 1)
Quarter: 2024Q2

REPORT INFORMATION
  Report Type: Spontaneous
  Country: RO (occurrence: RO)
  Receive Date: 20240606
  Receipt Date: 20240606
  Transmission Date: 20240715
  Serious: Yes (Other)
  Sender: FDA-Public Use
  Company Number: RO-ANIPHARMA-2024-RO-000012

PATIENT
  Age: 69 Year
  Sex: Female

DRUGS (1)
  1. CANDESARTAN CILEXETIL [Suspect]
     Active Substance: CANDESARTAN CILEXETIL
     Indication: Hypertension
     Dosage: 1 DF Q3WK

REACTIONS (14)
  - Intracranial pressure increased [Unknown]
  - Asthenia [Unknown]
  - Periorbital pain [Unknown]
  - Mood altered [Unknown]
  - Hypoaesthesia [Unknown]
  - Eye pain [Unknown]
  - Vision blurred [Unknown]
  - Dizziness [Unknown]
  - Breast pain [Unknown]
  - Tachypnoea [Unknown]
  - Headache [Unknown]
  - Burning sensation [Unknown]
  - Chest pain [Unknown]
  - Skin burning sensation [Unknown]
